FAERS Safety Report 7505522-2 (Version None)
Quarter: 2011Q2

REPORT INFORMATION
  Report Type: 
  Country: None (occurrence: None)
  Receive Date: 20110526
  Receipt Date: 20110418
  Transmission Date: 20111010
  Serious: Yes (Death, Hospitalization, Other)
  Sender: FDA-Public Use
  Company Number: AU-SANOFI-AVENTIS-2011SA032599

PATIENT
  Age: 72 Year
  Sex: Male

DRUGS (7)
  1. OFORTA [Suspect]
     Route: 048
     Dates: start: 20101222, end: 20101226
  2. ALLOPURINOL [Concomitant]
     Dates: end: 20110104
  3. PANTOPRAZOLE [Concomitant]
     Dates: end: 20110104
  4. CYCLOPHOSPHAMIDE [Suspect]
     Dosage: DAY 1-5
     Route: 048
     Dates: start: 20101222, end: 20101226
  5. RITUXIMAB [Suspect]
     Route: 042
     Dates: start: 20101221, end: 20101222
  6. VALACICLOVIR [Concomitant]
     Dates: end: 20110104
  7. GRANISETRON HCL [Concomitant]
     Dates: end: 20110104

REACTIONS (4)
  - PSEUDOMONAL SEPSIS [None]
  - MULTI-ORGAN FAILURE [None]
  - FEBRILE NEUTROPENIA [None]
  - PNEUMONIA [None]
